FAERS Safety Report 21604702 (Version 1)
Quarter: 2022Q4

REPORT INFORMATION
  Report Type: Spontaneous
  Country: JP (occurrence: JP)
  Receive Date: 20221116
  Receipt Date: 20221116
  Transmission Date: 20230112
  Serious: Yes (Hospitalization)
  Sender: FDA-Public Use
  Company Number: JP-ALLERGAN-2236942US

PATIENT
  Sex: Female

DRUGS (11)
  1. ASENAPINE MALEATE [Suspect]
     Active Substance: ASENAPINE MALEATE
     Indication: Product used for unknown indication
     Dosage: 20 MG, QD
     Route: 060
  2. ELDECALCITOL [Concomitant]
     Active Substance: ELDECALCITOL
     Dosage: 0.75 ?G, QD
  3. LITHIUM CARBONATE [Concomitant]
     Active Substance: LITHIUM CARBONATE
     Dosage: 100 MG, QD
  4. LEVOCARNITINE [Concomitant]
     Active Substance: LEVOCARNITINE
     Dosage: 1500 MG, QD
  5. FLUNITRAZEPAM [Concomitant]
     Active Substance: FLUNITRAZEPAM
     Dosage: 1 MG, QD
  6. VALPROATE SODIUM [Concomitant]
     Active Substance: VALPROATE SODIUM
     Dosage: ACTUAL: 600 MG/DAY (200 MG IN THE MORNING, 400 MG IN THE EVENING)
  7. LAGNOS NF JELLY FOR ORAL ADMINISTRATION [Concomitant]
     Dosage: 36 G, QD
     Route: 048
  8. ARIMIDEX [Concomitant]
     Active Substance: ANASTROZOLE
     Dosage: 1 MG, QD
  9. URSODIOL [Concomitant]
     Active Substance: URSODIOL
     Dosage: 600 MG, QD
  10. TRAZODONE HYDROCHLORIDE [Concomitant]
     Active Substance: TRAZODONE HYDROCHLORIDE
     Dosage: 25 MG, QD
  11. ABILIFY PROLONGED RELEASE AQUEOUS SUSPENSION FOR INTRAMUSCULAR INJECTI [Concomitant]
     Dosage: 400 MG, Q MONTH
     Route: 030

REACTIONS (3)
  - Hypercalcaemia [Recovering/Resolving]
  - Renal impairment [Recovering/Resolving]
  - Somnolence [Recovering/Resolving]

NARRATIVE: CASE EVENT DATE: 20211115
